FAERS Safety Report 4651876-4 (Version None)
Quarter: 2005Q2

REPORT INFORMATION
  Report Type: 
  Country: None (occurrence: None)
  Receive Date: 20050504
  Receipt Date: 20050218
  Transmission Date: 20051028
  Serious: Yes (Hospitalization)
  Sender: FDA-Public Use
  Company Number: 200501152

PATIENT
  Age: 60 Year
  Sex: Male
  Weight: 65 kg

DRUGS (4)
  1. PAXIL [Suspect]
     Indication: ANXIETY
     Dosage: 10MG PER DAY
     Route: 048
     Dates: start: 20050212, end: 20050214
  2. TAGAMET [Suspect]
     Dosage: 200MG TWICE PER DAY
     Route: 048
     Dates: start: 20010824
  3. TRIAZOLAM [Suspect]
     Indication: INSOMNIA
     Dosage: .25MG PER DAY
     Route: 048
     Dates: start: 20010824
  4. ETIZOLAM [Suspect]
     Indication: ANXIETY DISORDER
     Dosage: 3MG PER DAY
     Route: 048
     Dates: start: 20010824, end: 20050212

REACTIONS (19)
  - APHASIA [None]
  - BLOOD BILIRUBIN INCREASED [None]
  - BLOOD CREATINE PHOSPHOKINASE INCREASED [None]
  - BLOOD LACTATE DEHYDROGENASE INCREASED [None]
  - BLOOD UREA INCREASED [None]
  - CHILLS [None]
  - DECREASED APPETITE [None]
  - HEADACHE [None]
  - HYPERHIDROSIS [None]
  - HYPERVENTILATION [None]
  - HYPOAESTHESIA [None]
  - HYPOVENTILATION [None]
  - IMPAIRED DRIVING ABILITY [None]
  - MALAISE [None]
  - MUSCULOSKELETAL STIFFNESS [None]
  - MYOGLOBIN URINE [None]
  - NEUROLEPTIC MALIGNANT SYNDROME [None]
  - TREMOR [None]
  - WHITE BLOOD CELL COUNT INCREASED [None]
